FAERS Safety Report 5594946-9 (Version None)
Quarter: 2008Q1

REPORT INFORMATION
  Report Type: 
  Country: None (occurrence: None)
  Receive Date: 20080117
  Receipt Date: 20080109
  Transmission Date: 20080703
  Serious: Yes (Hospitalization)
  Sender: FDA-Public Use
  Company Number: FR-WYE-G00860808

PATIENT
  Sex: Female

DRUGS (7)
  1. ADVIL LIQUI-GELS [Suspect]
     Dosage: ONE SINGLE DOSE
     Route: 048
     Dates: start: 20071015, end: 20071015
  2. OESTRODOSE [Concomitant]
     Dosage: UNKNOWN
  3. CETAVLEX [Concomitant]
     Dosage: UNKNOWN
     Route: 061
     Dates: start: 20071015
  4. TITANOREINE [Concomitant]
     Indication: HAEMORRHOIDS
     Dosage: UNKNOWN
     Route: 061
     Dates: start: 20071015
  5. SODIUM LAURYL SULFATE [Concomitant]
     Indication: HAEMORRHOIDS
     Dosage: UNKNOWN
     Route: 061
     Dates: start: 20071015
  6. LUTERAN [Concomitant]
     Dosage: UNKNOWN
  7. DAFLON [Concomitant]
     Indication: HAEMORRHOIDS
     Dosage: ONE TABLET
     Route: 048
     Dates: start: 20071015

REACTIONS (7)
  - ANGIOEDEMA [None]
  - APHONIA [None]
  - BLOOD PRESSURE DECREASED [None]
  - FEELING HOT [None]
  - PRURITUS [None]
  - SUFFOCATION FEELING [None]
  - URTICARIA [None]
